FAERS Safety Report 10132026 (Version 1)
Quarter: 2014Q2

REPORT INFORMATION
  Report Type: Spontaneous
  Country: NO (occurrence: NO)
  Receive Date: 20140428
  Receipt Date: 20140428
  Transmission Date: 20141212
  Serious: Yes (Other)
  Sender: FDA-Public Use
  Company Number: NO-PFIZER INC-2014115935

PATIENT
  Age: 30 Year
  Sex: Female

DRUGS (6)
  1. CHAMPIX [Suspect]
     Indication: SMOKING CESSATION THERAPY
     Dosage: DAY1 0.5 MG, 1X/DAY
     Route: 048
     Dates: start: 20140120, end: 2014
  2. CHAMPIX [Suspect]
     Dosage: DAY 4-7  0.5 MG, 2X/DAY
     Route: 048
     Dates: start: 2014, end: 20140227
  3. SOBRIL [Concomitant]
     Dosage: UNK, AS NEEDED
     Route: 048
  4. TRUXAL [Concomitant]
     Dosage: UNK, AS NEEDED
     Route: 048
  5. ZOPICLONE ACTAVIS [Concomitant]
     Dosage: 7.5 MG, 1X/DAY (EVENING)
     Route: 048
     Dates: start: 20131126
  6. QUETIAPIN ORIFARM GENERICS [Concomitant]
     Dosage: 200MG MORNING, 600MG EVENING (INCR FROM 400MG 20140224)
     Route: 048
     Dates: start: 2013

REACTIONS (4)
  - Suicidal ideation [Recovered/Resolved]
  - Suicidal behaviour [Recovered/Resolved]
  - Depersonalisation [Recovered/Resolved]
  - Mood swings [Recovered/Resolved]
